FAERS Safety Report 20558893 (Version 3)
Quarter: 2022Q4

REPORT INFORMATION
  Report Type: Spontaneous
  Country: NL (occurrence: NL)
  Receive Date: 20220307
  Receipt Date: 20221217
  Transmission Date: 20230113
  Serious: Yes (Other)
  Sender: FDA-Public Use
  Company Number: None

PATIENT
  Age: 86 Year
  Sex: Female

DRUGS (12)
  1. ERLOTINIB [Interacting]
     Active Substance: ERLOTINIB
     Indication: Non-small cell lung cancer
     Dosage: REDUCED TO 100 MG/DAY, 150 MILLIGRAM, QD
     Route: 048
  2. SIMVASTATIN [Interacting]
     Active Substance: SIMVASTATIN
     Indication: Product used for unknown indication
     Dosage: (1DD1, FOR TEN YEARS)
     Route: 065
  3. MINOCYCLINE [Interacting]
     Active Substance: MINOCYCLINE HYDROCHLORIDE
     Indication: Skin toxicity
     Dosage: 1DD1, FOR EIGHT MONTHS
     Route: 065
  4. ASPIRIN [Concomitant]
     Active Substance: ASPIRIN
     Indication: Product used for unknown indication
     Dosage: 1DD1, FOR TEN YEARS
     Route: 065
  5. OMEPRAZOLE [Concomitant]
     Active Substance: OMEPRAZOLE
     Indication: Product used for unknown indication
     Dosage: 1DD1, FOR TEN YEARS
     Route: 065
  6. METOPROLOL [Concomitant]
     Active Substance: METOPROLOL
     Indication: Product used for unknown indication
     Dosage: 1DD1, FOR TEN YEARS
     Route: 065
  7. DOXYCYCLINE [Concomitant]
     Active Substance: DOXYCYCLINE
     Indication: Product used for unknown indication
     Dosage: 100 MG, 1 ONCE A DAY)
     Route: 065
  8. ERLOTINIB [Interacting]
     Active Substance: ERLOTINIB
     Indication: Non-small cell lung cancer
     Dosage: 100 MILLIGRAM, QD, DOSE REDUCED TO 100MG/DAY
     Route: 065
  9. ERLOTINIB [Interacting]
     Active Substance: ERLOTINIB
     Indication: Non-small cell lung cancer
     Dosage: 150 MG, QD, 1 HOUR BEFORE BREAKFAST ON AN EMPTY STOMACH
  10. ERLOTINIB [Interacting]
     Active Substance: ERLOTINIB
     Indication: Non-small cell lung cancer
     Dosage: UNK, 2 HOURS AFTER DINNER
     Route: 065
  11. OMEPRAZOLE [Concomitant]
     Active Substance: OMEPRAZOLE
     Indication: Product used for unknown indication
     Dosage: 1DD1, FOR 7 YEARS, 20 MG, QD
     Route: 065
  12. ERLOTINIB [Interacting]
     Active Substance: ERLOTINIB
     Indication: Non-small cell lung cancer metastatic
     Dosage: 100 MILLIGRAMS, QD,DOSE REDUCED TO100MG/DAY.

REACTIONS (7)
  - Skin hyperpigmentation [Recovering/Resolving]
  - Myalgia [Recovering/Resolving]
  - Rash pustular [Recovering/Resolving]
  - Loss of personal independence in daily activities [Recovering/Resolving]
  - Fatigue [Recovering/Resolving]
  - Nausea [Recovering/Resolving]
  - Drug interaction [Unknown]
